FAERS Safety Report 16674436 (Version 1)
Quarter: 2019Q3

REPORT INFORMATION
  Report Type: Spontaneous
  Country: DE (occurrence: DE)
  Receive Date: 20190806
  Receipt Date: 20190806
  Transmission Date: 20191004
  Serious: Yes (Other)
  Sender: FDA-Public Use
  Company Number: DE-ASTRAZENECA-2019SF09146

PATIENT
  Sex: Female

DRUGS (1)
  1. NEXIUM MUPS [Suspect]
     Active Substance: ESOMEPRAZOLE
     Dosage: 20.0MG UNKNOWN
     Route: 048

REACTIONS (2)
  - Heart rate increased [Recovered/Resolved]
  - Inappropriate schedule of product administration [Unknown]
